FAERS Safety Report 5654371-9 (Version None)
Quarter: 2008Q1

REPORT INFORMATION
  Report Type: 
  Country: None (occurrence: None)
  Receive Date: 20080306
  Receipt Date: 20080227
  Transmission Date: 20080703
  Serious: Yes (Other)
  Sender: FDA-Public Use
  Company Number: US-ABBOTT-08P-163-0440214-00

PATIENT
  Age: 24 Month
  Sex: Female

DRUGS (3)
  1. VALPROIC ACID [Suspect]
     Indication: PETIT MAL EPILEPSY
  2. ZONISAMIDE [Concomitant]
     Indication: PETIT MAL EPILEPSY
  3. PHENOBARBITAL TAB [Concomitant]
     Indication: PETIT MAL EPILEPSY

REACTIONS (2)
  - CYTOGENETIC ABNORMALITY [None]
  - LEUKAEMOID REACTION [None]
